FAERS Safety Report 16025302 (Version 5)
Quarter: 2020Q4

REPORT INFORMATION
  Report Type: Spontaneous
  Country: US (occurrence: US)
  Receive Date: 20190301
  Receipt Date: 20201015
  Transmission Date: 20210113
  Serious: No
  Sender: FDA-Public Use
  Company Number: US-PFIZER INC-2019086588

PATIENT
  Age: 61 Year
  Sex: Female

DRUGS (20)
  1. ATORVASTATIN CALCIUM. [Suspect]
     Active Substance: ATORVASTATIN CALCIUM
     Dosage: UNK
  2. ALLEGRA [Suspect]
     Active Substance: FEXOFENADINE HYDROCHLORIDE
     Dosage: UNK
  3. DULOXETINE. [Suspect]
     Active Substance: DULOXETINE
     Dosage: UNK
  4. FEXOFENADINE [Suspect]
     Active Substance: FEXOFENADINE HYDROCHLORIDE
     Dosage: UNK
  5. NUTRASWEET [Suspect]
     Active Substance: ASPARTAME
     Dosage: UNK
  6. PLAVIX [Suspect]
     Active Substance: CLOPIDOGREL BISULFATE
     Dosage: UNK
  7. FORADIL [Suspect]
     Active Substance: FORMOTEROL FUMARATE
     Dosage: UNK
  8. ERYTHROMYCIN. [Suspect]
     Active Substance: ERYTHROMYCIN
     Dosage: UNK
  9. RAMIPRIL. [Suspect]
     Active Substance: RAMIPRIL
     Dosage: UNK
  10. ASPIRIN. [Suspect]
     Active Substance: ASPIRIN
     Dosage: UNK
  11. CRESTOR [Suspect]
     Active Substance: ROSUVASTATIN CALCIUM
     Dosage: UNK
  12. FORMOTEROL [Suspect]
     Active Substance: FORMOTEROL
     Dosage: UNK
  13. ALTACE [Suspect]
     Active Substance: RAMIPRIL
     Dosage: UNK
  14. LIPITOR [Suspect]
     Active Substance: ATORVASTATIN CALCIUM
     Dosage: UNK
  15. ASPARTAME [Suspect]
     Active Substance: ASPARTAME
     Dosage: UNK
  16. CLOPIDOGREL [Suspect]
     Active Substance: CLOPIDOGREL BISULFATE
     Dosage: UNK
  17. PREGABALIN. [Suspect]
     Active Substance: PREGABALIN
     Dosage: UNK
  18. ROSUVASTATIN CALCIUM. [Suspect]
     Active Substance: ROSUVASTATIN CALCIUM
     Dosage: UNK
  19. EFORMOTEROL [Suspect]
     Active Substance: FORMOTEROL
     Dosage: UNK
  20. VENLAFAXINE HCL [Suspect]
     Active Substance: VENLAFAXINE HYDROCHLORIDE
     Dosage: UNK

REACTIONS (1)
  - Drug hypersensitivity [Unknown]
